FAERS Safety Report 4401787-4 (Version None)
Quarter: 2004Q3

REPORT INFORMATION
  Report Type: 
  Country: None (occurrence: None)
  Receive Date: 20040719
  Receipt Date: 20040426
  Transmission Date: 20050211
  Serious: Yes (Life-Threatening, Disabling)
  Sender: FDA-Public Use
  Company Number: US-MERCK-0404USA02209

PATIENT
  Age: 49 Year
  Sex: Male
  Weight: 82 kg

DRUGS (11)
  1. ALBUTEROL SULFATE [Concomitant]
     Route: 055
  2. ALLOPURINOL [Concomitant]
     Route: 048
  3. ATENOLOL [Concomitant]
     Route: 048
  4. ASTELIN [Concomitant]
     Route: 055
  5. RHINOCORT [Concomitant]
     Route: 055
  6. ZETIA [Suspect]
     Indication: BLOOD CHOLESTEROL INCREASED
     Route: 048
     Dates: start: 20040401, end: 20040401
  7. ADVAIR DISKUS 100/50 [Concomitant]
     Route: 055
  8. CLARITIN-D [Concomitant]
     Route: 048
  9. SINGULAIR [Concomitant]
     Route: 048
  10. PROTONIX [Concomitant]
     Route: 048
  11. PREDNISONE [Concomitant]
     Route: 048

REACTIONS (5)
  - ASTHENIA [None]
  - MUSCLE SPASMS [None]
  - MYALGIA [None]
  - OEDEMA PERIPHERAL [None]
  - PAIN IN EXTREMITY [None]
